FAERS Safety Report 6033522-0 (Version None)
Quarter: 2009Q1

REPORT INFORMATION
  Report Type: 
  Country: None (occurrence: None)
  Receive Date: 20090109
  Receipt Date: 20081224
  Transmission Date: 20090719
  Serious: No
  Sender: FDA-Public Use
  Company Number: US-B.I. PHARMACEUTICALS,INC./RIDGEFIELD-2008-BP-18108BP

PATIENT
  Sex: Male

DRUGS (10)
  1. SPIRIVA [Suspect]
     Indication: CHRONIC OBSTRUCTIVE PULMONARY DISEASE
     Dosage: 18MCG
     Route: 055
     Dates: start: 20060101, end: 20060101
  2. SPIRIVA [Suspect]
     Indication: DYSPNOEA
  3. FLONASE [Concomitant]
     Indication: HYPERSENSITIVITY
  4. NEXIUM [Concomitant]
     Indication: GASTROOESOPHAGEAL REFLUX DISEASE
  5. ASMANEX TWISTHALER [Concomitant]
  6. AVAPRO [Concomitant]
  7. ATENOLOL [Concomitant]
  8. METFORMIN HCL [Concomitant]
  9. PROVENTIL [Concomitant]
  10. PRAVASTATIN [Concomitant]

REACTIONS (1)
  - URINARY INCONTINENCE [None]
